FAERS Safety Report 19189153 (Version 1)
Quarter: 2021Q2

REPORT INFORMATION
  Report Type: Spontaneous
  Country: NL (occurrence: NL)
  Receive Date: 20210428
  Receipt Date: 20210428
  Transmission Date: 20210717
  Serious: Yes (Other)
  Sender: FDA-Public Use
  Company Number: NL-TEVA-2021-NL-1904838

PATIENT
  Age: 47 Year
  Sex: Female
  Weight: 51 kg

DRUGS (5)
  1. DAPSON TABLET 100MG / BRAND NAME NOT SPECIFIED [Concomitant]
     Dosage: .5 DOSAGE FORMS DAILY; THERAPY END DATE : ASKED BUT UNKNOWN
     Dates: start: 1998
  2. AZATHIOPRINE TABLET  50MG / BRAND NAME NOT SPECIFIED [Concomitant]
     Dosage: 1 PIECE EVERY OTHER DAY , THERAPY END DATE : ASKED BUT UNKNOWN
     Dates: start: 2002
  3. ALLOPURINOL TABLET 100MG / BRAND NAME NOT SPECIFIED [Suspect]
     Active Substance: ALLOPURINOL
     Dosage: 1 DOSAGE FORMS DAILY; THERAPY END DATE : ASKED BUT UNKNOWN
     Dates: start: 202101
  4. FOLIUMZUUR TABLET 0,5MG / BRAND NAME NOT SPECIFIED [Concomitant]
     Active Substance: FOLIC ACID
     Dosage: 0,5 MG (MILLIGRAM) , THERAPY START DATE AND END DATE : ASKED BUT UNKNOWN
  5. MESALAZINE GRANULAAT MGA 3G / BRAND NAME NOT SPECIFIED [Suspect]
     Active Substance: MESALAMINE
     Indication: PRODUCT USED FOR UNKNOWN INDICATION
     Dosage: 1 DOSAGE FORMS DAILY; THERAPY END DATE : ASKED BUT UNKNOWN
     Dates: start: 202006

REACTIONS (16)
  - Injection site pain [Not Recovered/Not Resolved]
  - Thirst [Recovered/Resolved]
  - Abdominal pain [Recovering/Resolving]
  - Oropharyngeal pain [Recovered/Resolved]
  - Back pain [Recovering/Resolving]
  - Eye pain [Recovered/Resolved]
  - Dizziness [Recovered/Resolved]
  - Cough [Recovered/Resolved]
  - Lymphadenopathy [Not Recovered/Not Resolved]
  - Neck pain [Recovering/Resolving]
  - Fatigue [Not Recovered/Not Resolved]
  - Chills [Recovered/Resolved]
  - Chromaturia [Recovered/Resolved]
  - Hyperpyrexia [Recovered/Resolved]
  - Headache [Recovered/Resolved]
  - Malaise [Recovering/Resolving]

NARRATIVE: CASE EVENT DATE: 20210227
